FAERS Safety Report 5419000-8 (Version None)
Quarter: 2007Q3

REPORT INFORMATION
  Report Type: 
  Country: None (occurrence: None)
  Receive Date: 20070817
  Receipt Date: 20070806
  Transmission Date: 20080115
  Serious: Yes (Other)
  Sender: FDA-Public Use
  Company Number: NL-PFIZER INC-2007066563

PATIENT
  Sex: Male
  Weight: 69 kg

DRUGS (1)
  1. SUTENT [Suspect]
     Indication: METASTATIC RENAL CELL CARCINOMA
     Dosage: FREQ:CYCLIC: 4 WEEKS ON - 2 WEEKS OFF
     Route: 048

REACTIONS (6)
  - LACRIMATION INCREASED [None]
  - OCULAR HYPERAEMIA [None]
  - ORAL CANDIDIASIS [None]
  - ORAL PAIN [None]
  - RASH PAPULAR [None]
  - TONGUE DISORDER [None]
